FAERS Safety Report 5407296-8 (Version None)
Quarter: 2007Q3

REPORT INFORMATION
  Report Type: 
  Country: None (occurrence: None)
  Receive Date: 20070807
  Receipt Date: 20070801
  Transmission Date: 20080115
  Serious: Yes (Other)
  Sender: FDA-Public Use
  Company Number: AU-ABBOTT-07P-008-0376331-01

PATIENT
  Sex: Male
  Weight: 101 kg

DRUGS (16)
  1. RITONAVIR SOFT GELATIN CAPSULES [Suspect]
     Indication: HIV INFECTION
     Route: 048
     Dates: start: 20040212
  2. TMC114 [Concomitant]
     Indication: HIV INFECTION
     Route: 048
     Dates: start: 20040212
  3. ABACAVIR [Concomitant]
     Indication: DRUG USE FOR UNKNOWN INDICATION
     Route: 048
     Dates: start: 20060825
  4. TENOFOVIR [Concomitant]
     Indication: HIV INFECTION
     Route: 048
     Dates: start: 20011212
  5. LAMIVUDINE [Concomitant]
     Indication: HIV INFECTION
     Route: 048
     Dates: start: 20060825
  6. ABACAVIR SULFATE W/LAMIVUDINE [Concomitant]
     Indication: HIV INFECTION
     Dates: start: 20040201
  7. ASPIRIN [Concomitant]
     Indication: PROPHYLAXIS
     Dates: start: 20051201
  8. CABERGOLINE [Concomitant]
     Indication: BLOOD PROLACTIN INCREASED
     Dates: start: 20050427
  9. VALACYCLOVIR HCL [Concomitant]
     Indication: HERPES SIMPLEX
     Dates: start: 20041101
  10. PREGABALIN [Concomitant]
     Indication: NEUROPATHY PERIPHERAL
     Dates: start: 20060524
  11. VALPROATE SODIUM [Concomitant]
     Indication: NEUROPATHY PERIPHERAL
     Dates: start: 20060301
  12. PANTOPRAZOLE SODIUM [Concomitant]
     Indication: GASTROOESOPHAGEAL REFLUX DISEASE
  13. BLOPRESS PLUS [Concomitant]
     Indication: HYPERTENSION
     Dates: start: 20051101
  14. PRAZOSIN HCL [Concomitant]
     Indication: HYPERTENSION
     Dates: start: 20051101
  15. ATENOLOL [Concomitant]
     Indication: HYPERTENSION
     Dates: start: 20070501
  16. PENTAMIDINE ISETHIONATE [Concomitant]
     Indication: ANTIFUNGAL PROPHYLAXIS
     Route: 055

REACTIONS (1)
  - BRAIN STEM HAEMORRHAGE [None]
